FAERS Safety Report 10747780 (Version 1)
Quarter: 2015Q1

REPORT INFORMATION
  Report Type: Spontaneous
  Country: US (occurrence: US)
  Receive Date: 20150129
  Receipt Date: 20150129
  Transmission Date: 20150721
  Serious: Yes (Hospitalization)
  Sender: FDA-Public Use
  Company Number: US-SUN PHARMACEUTICAL INDUSTRIES LTD-2015SUN00243

PATIENT

DRUGS (2)
  1. METFORMIN [Suspect]
     Active Substance: METFORMIN HYDROCHLORIDE
     Indication: DIABETES MELLITUS
     Dosage: UNK
     Route: 065
  2. HALOPERIDOL. [Concomitant]
     Active Substance: HALOPERIDOL
     Indication: SCHIZOPHRENIA
     Dosage: UNK
     Route: 065

REACTIONS (6)
  - Overdose [Recovering/Resolving]
  - Unresponsive to stimuli [Recovering/Resolving]
  - Anuria [Recovering/Resolving]
  - Toxicity to various agents [Recovering/Resolving]
  - Haemodynamic instability [Recovering/Resolving]
  - Acid-base balance disorder mixed [Recovering/Resolving]
